FAERS Safety Report 12269957 (Version 3)
Quarter: 2016Q2

REPORT INFORMATION
  Report Type: Report from Study
  Country: US (occurrence: US)
  Receive Date: 20160415
  Receipt Date: 20160520
  Transmission Date: 20160815
  Serious: No
  Sender: FDA-Public Use
  Company Number: US-AMGEN-USASL2016045451

PATIENT
  Age: 57 Year
  Sex: Male

DRUGS (1)
  1. ENBREL [Suspect]
     Active Substance: ETANERCEPT
     Indication: PSORIASIS
     Dosage: 50 MG, TWICE WEEKLY
     Route: 065
     Dates: start: 20160327

REACTIONS (8)
  - Feeling jittery [Unknown]
  - Rhinorrhoea [Unknown]
  - Hypoglycaemia [Unknown]
  - Somnolence [Not Recovered/Not Resolved]
  - Adverse drug reaction [Unknown]
  - Tremor [Unknown]
  - Dysphonia [Unknown]
  - Asthenia [Unknown]

NARRATIVE: CASE EVENT DATE: 2016
